FAERS Safety Report 4650553-3 (Version None)
Quarter: 2005Q2

REPORT INFORMATION
  Report Type: 
  Country: None (occurrence: None)
  Receive Date: 20050429
  Receipt Date: 20050420
  Transmission Date: 20051028
  Serious: Yes (Hospitalization)
  Sender: FDA-Public Use
  Company Number: 2005-04-1575

PATIENT
  Age: 57 Year
  Sex: Female

DRUGS (14)
  1. AVELOX [Suspect]
     Indication: BRONCHITIS
     Dosage: ORAL
     Route: 048
  2. NASONEX [Suspect]
     Dosage: NASAL SPRAY
     Route: 045
  3. COUMADIN [Suspect]
     Dosage: ORAL
     Route: 048
  4. NASACORT [Concomitant]
     Dosage: NASAL SPRAY
     Route: 045
  5. NAPROSYN [Suspect]
     Dosage: ORAL
     Route: 048
  6. TIAZAC [Suspect]
     Dosage: ORAL
     Route: 048
  7. LIPITOR [Suspect]
     Dosage: ORAL
     Route: 048
  8. LASIX [Suspect]
     Dosage: ORAL
     Route: 048
  9. TOPROL-XL [Suspect]
     Dosage: ORAL
     Route: 048
  10. LISINOPRIL [Suspect]
     Dosage: ORAL
     Route: 048
  11. PREDNISONE [Suspect]
     Dosage: ORAL
     Route: 048
  12. HUMIBID LA (GUAIFENESIN) [Suspect]
     Dosage: ORAL
     Route: 048
  13. COMBIVENT [Suspect]
     Dosage: ORAL AER INH
     Route: 055
  14. ESTRACE [Suspect]
     Dosage: ORAL
     Route: 048

REACTIONS (3)
  - ABDOMINAL HAEMATOMA [None]
  - ABDOMINAL PAIN [None]
  - BRONCHITIS [None]
